FAERS Safety Report 8127004-X (Version None)
Quarter: 2012Q1

REPORT INFORMATION
  Report Type: 
  Country: None (occurrence: None)
  Receive Date: 20120210
  Receipt Date: 20120207
  Transmission Date: 20120608
  Serious: Yes (Other)
  Sender: FDA-Public Use
  Company Number: US-BAYER-2012-012882

PATIENT
  Sex: Female

DRUGS (2)
  1. MIRENA [Suspect]
     Indication: CONTRACEPTION
     Dosage: 20 ?G/D, CONT
     Dates: start: 20111114, end: 20111229
  2. MIRENA [Suspect]
     Indication: MENORRHAGIA

REACTIONS (2)
  - VAGINAL HAEMORRHAGE [None]
  - MEDICAL DEVICE DISCOMFORT [None]
